FAERS Safety Report 18038479 (Version 1)
Quarter: 2020Q3

REPORT INFORMATION
  Report Type: Spontaneous
  Country: GB (occurrence: GB)
  Receive Date: 20200717
  Receipt Date: 20200717
  Transmission Date: 20201103
  Serious: Yes (Other)
  Sender: FDA-Public Use
  Company Number: GB-VERTEX PHARMACEUTICALS-2020-014786

PATIENT
  Sex: Male

DRUGS (2)
  1. SYMKEVI [Suspect]
     Active Substance: IVACAFTOR\TEZACAFTOR
     Indication: CYSTIC FIBROSIS
     Dosage: 100 MG TEZACAFTOR/150 MG IVACAFTOR, FREQUENCY UNKNOWN
     Route: 048
     Dates: start: 2020, end: 2020
  2. KALYDECO [Suspect]
     Active Substance: IVACAFTOR
     Indication: CYSTIC FIBROSIS
     Dosage: UNKNOWN
     Route: 048
     Dates: start: 2020, end: 2020

REACTIONS (3)
  - Drug interaction [Unknown]
  - Generalised tonic-clonic seizure [Unknown]
  - Somnolence [Unknown]

NARRATIVE: CASE EVENT DATE: 2020
